FAERS Safety Report 10592874 (Version 3)
Quarter: 2016Q2

REPORT INFORMATION
  Report Type: Report from Study
  Country: CZ (occurrence: CZ)
  Receive Date: 20141119
  Receipt Date: 20160411
  Transmission Date: 20160815
  Serious: Yes (Other)
  Sender: FDA-Public Use
  Company Number: CZ-BAYER-2014-170973

PATIENT
  Age: 47 Year
  Sex: Female
  Weight: 74.83 kg

DRUGS (1)
  1. MIRENA [Suspect]
     Active Substance: LEVONORGESTREL
     Indication: CONTRACEPTION
     Dosage: 20 MCG/24HR, CONT
     Route: 015
     Dates: start: 20140507, end: 20141110

REACTIONS (21)
  - Abdominal pain lower [Not Recovered/Not Resolved]
  - Erythema [Not Recovered/Not Resolved]
  - Loss of libido [None]
  - Breast enlargement [Not Recovered/Not Resolved]
  - Nosophobia [None]
  - Menometrorrhagia [None]
  - Breast pain [Not Recovered/Not Resolved]
  - Uterine inflammation [None]
  - Dysmenorrhoea [None]
  - Disinhibition [None]
  - Breast cyst [Not Recovered/Not Resolved]
  - Breast tenderness [Not Recovered/Not Resolved]
  - Spinal pain [Not Recovered/Not Resolved]
  - Malaise [None]
  - Body temperature increased [Not Recovered/Not Resolved]
  - Premenstrual syndrome [None]
  - Mental disorder [None]
  - Ovarian cyst [Not Recovered/Not Resolved]
  - Genital haemorrhage [Recovered/Resolved]
  - Phobia of driving [None]
  - Impaired work ability [None]

NARRATIVE: CASE EVENT DATE: 2014
